FAERS Safety Report 15842996 (Version 2)
Quarter: 2019Q1

REPORT INFORMATION
  Report Type: Spontaneous
  Country: US (occurrence: US)
  Receive Date: 20190118
  Receipt Date: 20190221
  Transmission Date: 20190417
  Serious: No
  Sender: FDA-Public Use
  Company Number: US-ASTRAZENECA-2019SE05657

PATIENT
  Age: 70 Year
  Sex: Male
  Weight: 113.4 kg

DRUGS (2)
  1. BYDUREON [Suspect]
     Active Substance: EXENATIDE
     Route: 058
     Dates: start: 2018, end: 2018
  2. BYDUREON BCISE [Suspect]
     Active Substance: EXENATIDE
     Route: 058
     Dates: start: 2018

REACTIONS (5)
  - Intentional device misuse [Recovered/Resolved]
  - Wrong technique in device usage process [Unknown]
  - Device malfunction [Unknown]
  - Device leakage [Unknown]
  - Injection site pain [Recovered/Resolved]

NARRATIVE: CASE EVENT DATE: 2018
